FAERS Safety Report 4484440-0 (Version None)
Quarter: 2004Q4

REPORT INFORMATION
  Report Type: 
  Country: None (occurrence: None)
  Receive Date: 20041025
  Receipt Date: 20041013
  Transmission Date: 20050328
  Serious: Yes (Other)
  Sender: FDA-Public Use
  Company Number: 2004077277

PATIENT
  Sex: Female

DRUGS (7)
  1. BENADRYL [Suspect]
     Indication: TRIGEMINAL NEURALGIA
     Dosage: ORAL
     Route: 048
  2. BENADRYL ALLERGY/COLD (DIPHENHYDRAMINE, PARACETAMOL, PSEUDOEPHEDRINE) [Suspect]
     Indication: TRIGEMINAL NEURALGIA
     Dosage: 1 OR 2 CAPLETS AS NEEDED, ORAL
     Route: 048
  3. PHENYTOIN SODIUM [Concomitant]
  4. GABAPENTIN [Concomitant]
  5. PHENOBARBITAL TAB [Concomitant]
  6. CONJUGATED ESTROGENS [Concomitant]
  7. ASPIRIN [Concomitant]

REACTIONS (2)
  - CEREBROVASCULAR ACCIDENT [None]
  - MULTIPLE SCLEROSIS [None]
